FAERS Safety Report 25805210 (Version 1)
Quarter: 2025Q3

REPORT INFORMATION
  Report Type: Spontaneous
  Country: US (occurrence: US)
  Receive Date: 20250916
  Receipt Date: 20250916
  Transmission Date: 20251021
  Serious: No
  Sender: GALDERMA
  Company Number: US-GALDERMA-US2025015810

PATIENT

DRUGS (1)
  1. AKLIEF [Suspect]
     Active Substance: TRIFAROTENE
     Indication: Product used for unknown indication
     Route: 061

REACTIONS (1)
  - Product prescribing error [Recovered/Resolved]
